FAERS Safety Report 8576538-2 (Version None)
Quarter: 2012Q3

REPORT INFORMATION
  Report Type: 
  Country: None (occurrence: None)
  Receive Date: 20120807
  Receipt Date: 20120729
  Transmission Date: 20120928
  Serious: Yes (Other)
  Sender: FDA-Public Use
  Company Number: US-JNJFOC-20120714958

PATIENT
  Sex: Female
  Weight: 56.7 kg

DRUGS (4)
  1. SIMPONI [Suspect]
     Indication: RHEUMATOID ARTHRITIS
     Route: 058
     Dates: start: 20120301
  2. METHOTREXATE [Concomitant]
     Indication: RHEUMATOID ARTHRITIS
     Route: 048
     Dates: start: 20110501
  3. PREDNISONE [Concomitant]
     Indication: RHEUMATOID ARTHRITIS
     Route: 048
     Dates: start: 20110501
  4. FORTEO [Concomitant]
     Indication: OSTEOPENIA
     Route: 048
     Dates: start: 20110501

REACTIONS (3)
  - UNDERDOSE [None]
  - DEVICE MALFUNCTION [None]
  - CATARACT [None]
